FAERS Safety Report 7319514-X (Version None)
Quarter: 2011Q1

REPORT INFORMATION
  Report Type: 
  Country: None (occurrence: None)
  Receive Date: 20110228
  Receipt Date: 20100503
  Transmission Date: 20110831
  Serious: No
  Sender: FDA-Public Use
  Company Number: A0856788A

PATIENT
  Sex: Female

DRUGS (1)
  1. LAMOTRIGINE [Suspect]
     Dosage: 150MG PER DAY
     Route: 048
     Dates: start: 20091101

REACTIONS (1)
  - DRUG INEFFECTIVE [None]
